FAERS Safety Report 19230632 (Version 1)
Quarter: 2021Q2

REPORT INFORMATION
  Report Type: Spontaneous
  Country: CA (occurrence: CA)
  Receive Date: 20210506
  Receipt Date: 20210506
  Transmission Date: 20210717
  Serious: Yes (Hospitalization)
  Sender: FDA-Public Use
  Company Number: None

PATIENT
  Age: 22 Year
  Sex: Female
  Weight: 63 kg

DRUGS (1)
  1. NONOXYNOL 9 FILM [Suspect]
     Active Substance: NONOXYNOL-9
     Indication: CONTRACEPTION
     Dosage: ?          QUANTITY:1 FILM;?OTHER FREQUENCY:EVERY TIME SEX;?
     Route: 067
     Dates: start: 20210427, end: 20210501

REACTIONS (5)
  - Exposure via ingestion [None]
  - Abdominal pain upper [None]
  - Pelvic inflammatory disease [None]
  - Dysuria [None]
  - Pharyngitis [None]

NARRATIVE: CASE EVENT DATE: 20210501
